FAERS Safety Report 22628850 (Version 1)
Quarter: 2023Q2

REPORT INFORMATION
  Report Type: Spontaneous
  Country: US (occurrence: US)
  Receive Date: 20230622
  Receipt Date: 20230622
  Transmission Date: 20230721
  Serious: Yes (Disabling)
  Sender: FDA-Public Use
  Company Number: US-TEVA-2023-US-2899549

PATIENT
  Age: 54 Year
  Sex: Female
  Weight: 81.65 kg

DRUGS (12)
  1. DOCETAXEL [Suspect]
     Active Substance: DOCETAXEL
     Indication: Breast cancer stage II
     Dosage: 75MG/M2 (148MG IN 250 ML) D5W IV OVER 60 MINS, EVERY 2 WEEKS
     Route: 042
     Dates: start: 20141211, end: 20150503
  2. DOCETAXEL [Suspect]
     Active Substance: DOCETAXEL
     Indication: Breast cancer stage II
     Dosage: 75MG/M2 (148MG IN 250 ML) D5W IV OVER 60 MINS, EVERY 2 WEEKS
     Route: 042
     Dates: start: 20141211, end: 20150503
  3. CYCLOPHOSPHAMIDE [Suspect]
     Active Substance: CYCLOPHOSPHAMIDE
     Indication: Breast cancer stage II
     Dosage: 500MG/M2 (985MG IN 150 ML) D5W IV OVER 30-60 MINS, EVERY 2 WEEKS
     Route: 042
     Dates: start: 20141211, end: 20150503
  4. DOXORUBICIN [Suspect]
     Active Substance: DOXORUBICIN
     Indication: Breast cancer stage II
     Dosage: 50MG/M2 (98MG IV PUSH OVER 15 MINS), EVERY 2 WEEKS
     Route: 042
     Dates: start: 20141211, end: 20150503
  5. VITAMIN C [Concomitant]
     Active Substance: ASCORBIC ACID
     Indication: Product used for unknown indication
     Dosage: 500 MILLIGRAM DAILY; UNTIL PRESENT, 1 TAB(S) ONCE A DAY
     Route: 048
     Dates: start: 2014
  6. IBUPROFEN [Concomitant]
     Active Substance: IBUPROFEN
     Indication: Product used for unknown indication
     Dosage: 2 TAB(S) AS NEEDED
     Route: 048
     Dates: start: 2014, end: 2016
  7. OXYCODONE [Concomitant]
     Active Substance: OXYCODONE
     Indication: Product used for unknown indication
     Dosage: 5 MG, 1 TAB(S) ORALLY, AS NEEDED
     Route: 048
     Dates: start: 20141231
  8. SENOKOT-S [Concomitant]
     Active Substance: DOCUSATE SODIUM\SENNOSIDES
     Indication: Product used for unknown indication
     Dosage: 50 MG-8.6 MG TABLET: 2 TAB(S) ORALLY ONCE A DAY (AT BEDTIME)
     Route: 048
     Dates: start: 20141217, end: 20150204
  9. NYSTATIN [Concomitant]
     Active Substance: NYSTATIN
     Indication: Product used for unknown indication
     Dosage: 100000 UNITS/ML ORAL SUSPENSION: 5 MILLILITER(S) ORALLY 4 TIMES A DAY, AS NEEDED
     Route: 048
     Dates: start: 20141217, end: 20150120
  10. ONDANSETRON [Concomitant]
     Active Substance: ONDANSETRON
     Indication: Product used for unknown indication
     Dosage: 8 MG, 1 TAB(S) ORALLY 2 TIMES A DAY FOR 5 DAYS, BEGIN THE EVENING OF TREATMENT
     Route: 048
     Dates: start: 20141211
  11. DEXAMETHASONE [Concomitant]
     Active Substance: DEXAMETHASONE
     Indication: Product used for unknown indication
     Dosage: 4MG: 2TABS EVENING BEFORE, MORNING OF TREATMENT. 1TAB EVENING OF TREATMENT, THEN 2X DAILY FOR 5 DAYS
     Route: 048
     Dates: start: 20141204, end: 20150114
  12. EXEMESTANE [Concomitant]
     Active Substance: EXEMESTANE
     Indication: Product used for unknown indication
     Dosage: UNTIL PRESENT, 25MG
     Dates: start: 201412

REACTIONS (4)
  - Alopecia areata [Recovered/Resolved]
  - Madarosis [Recovered/Resolved]
  - Hair texture abnormal [Recovered/Resolved]
  - Hair colour changes [Recovered/Resolved]

NARRATIVE: CASE EVENT DATE: 20150901
